FAERS Safety Report 8109141-9 (Version None)
Quarter: 2012Q1

REPORT INFORMATION
  Report Type: 
  Country: None (occurrence: None)
  Receive Date: 20120202
  Receipt Date: 20120102
  Transmission Date: 20120608
  Serious: No
  Sender: FDA-Public Use
  Company Number: US-AMGEN-USASP2011060026

PATIENT
  Age: 44 Year
  Sex: Female
  Weight: 48.526 kg

DRUGS (1)
  1. ENBREL [Suspect]
     Indication: PSORIASIS
     Dosage: 50 MG, QWK
     Route: 058
     Dates: start: 20111101

REACTIONS (4)
  - IRRITABILITY [None]
  - DRY SKIN [None]
  - SKIN DISCOLOURATION [None]
  - SKIN EXFOLIATION [None]
